FAERS Safety Report 7632923-4 (Version None)
Quarter: 2011Q3

REPORT INFORMATION
  Report Type: 
  Country: None (occurrence: None)
  Receive Date: 20110725
  Receipt Date: 20110713
  Transmission Date: 20111222
  Serious: Yes (Other)
  Sender: FDA-Public Use
  Company Number: PHHY2009CA54607

PATIENT
  Sex: Male

DRUGS (7)
  1. EXJADE [Suspect]
     Indication: MYELODYSPLASTIC SYNDROME
     Dosage: 1750 MG
  2. EXJADE [Suspect]
     Dosage: 2000 MG, QD
     Route: 048
     Dates: start: 20091111, end: 20110325
  3. EXJADE [Suspect]
     Dosage: 1500 MG, UNK
  4. EXJADE [Suspect]
     Dosage: 1000 MG, QD
     Route: 048
     Dates: start: 20091112
  5. REVLIMID [Suspect]
     Indication: MYELODYSPLASTIC SYNDROME
     Dates: start: 20100824
  6. EXJADE [Suspect]
     Dosage: 500 MG, QD
     Route: 048
  7. TESTOSTERONE [Concomitant]

REACTIONS (21)
  - APPENDICITIS [None]
  - HEART RATE IRREGULAR [None]
  - HEART RATE INCREASED [None]
  - TOOTH INFECTION [None]
  - DIARRHOEA [None]
  - ABDOMINAL DISCOMFORT [None]
  - ABDOMINAL DISTENSION [None]
  - CONSTIPATION [None]
  - ATRIAL FLUTTER [None]
  - PNEUMONIA BACTERIAL [None]
  - RENAL IMPAIRMENT [None]
  - MACULAR DEGENERATION [None]
  - ABDOMINAL PAIN [None]
  - NEUTROPHIL COUNT DECREASED [None]
  - BLOOD CREATINE INCREASED [None]
  - ARRHYTHMIA [None]
  - EXTRASYSTOLES [None]
  - GASTROINTESTINAL MOTILITY DISORDER [None]
  - INFECTION [None]
  - FLATULENCE [None]
  - RED BLOOD CELL COUNT DECREASED [None]
